FAERS Safety Report 9177077 (Version 2)
Quarter: 2013Q2

REPORT INFORMATION
  Report Type: Spontaneous
  Country: US (occurrence: US)
  Receive Date: 20130321
  Receipt Date: 20130423
  Transmission Date: 20140414
  Serious: No
  Sender: FDA-Public Use
  Company Number: US-PFIZER INC-2013088484

PATIENT
  Age: 46 Year
  Sex: Female
  Weight: 64.85 kg

DRUGS (6)
  1. PREMARIN [Suspect]
     Indication: MENOPAUSAL SYMPTOMS
     Dosage: 1.25 MG, DAILY
     Route: 048
  2. PREMARIN [Suspect]
     Dosage: 0.625 MG, DAILY
     Route: 048
  3. ESTRADIOL [Suspect]
     Indication: HORMONE REPLACEMENT THERAPY
     Dosage: 1 MG, UNK
  4. PREVACID [Concomitant]
     Dosage: 40 MG, UNK
     Route: 048
  5. PROZAC [Concomitant]
     Dosage: 40 MG, UNK
  6. LORTAB [Concomitant]
     Dosage: UNK
     Route: 048

REACTIONS (2)
  - Loss of libido [Unknown]
  - Blood pressure increased [Unknown]
